FAERS Safety Report 15715298 (Version 2)
Quarter: 2019Q1

REPORT INFORMATION
  Report Type: Spontaneous
  Country: US (occurrence: US)
  Receive Date: 20181212
  Receipt Date: 20190128
  Transmission Date: 20190417
  Serious: No
  Sender: FDA-Public Use
  Company Number: US-PFIZER INC-2018508975

PATIENT
  Age: 55 Year
  Sex: Male

DRUGS (1)
  1. GENOTROPIN MQ [Suspect]
     Active Substance: SOMATROPIN
     Dosage: 0.4 MG, DAILY

REACTIONS (10)
  - Total cholesterol/HDL ratio increased [Unknown]
  - High density lipoprotein decreased [Unknown]
  - Oestradiol decreased [Unknown]
  - Red cell distribution width increased [Unknown]
  - Albumin globulin ratio increased [Unknown]
  - Iron binding capacity total increased [Unknown]
  - Serum ferritin decreased [Unknown]
  - Low density lipoprotein increased [Unknown]
  - Non-high-density lipoprotein cholesterol increased [Unknown]
  - Blood iron decreased [Unknown]
